FAERS Safety Report 9444187 (Version 1)
Quarter: 2013Q3

REPORT INFORMATION
  Report Type: Spontaneous
  Country: US (occurrence: None)
  Receive Date: 20130730
  Receipt Date: 20130730
  Transmission Date: 20140515
  Serious: No
  Sender: FDA-Public Use
  Company Number: 2013037086

PATIENT
  Age: 8 Month
  Sex: Female

DRUGS (2)
  1. IVIG [Suspect]
     Indication: AUTOIMMUNE HAEMOLYTIC ANAEMIA
  2. CYCLOSPORINE ( CICLOSPORIN) [Concomitant]

REACTIONS (1)
  - Nephrotic syndrome [None]
